FAERS Safety Report 24627181 (Version 1)
Quarter: 2024Q4

REPORT INFORMATION
  Report Type: Spontaneous
  Country: US (occurrence: US)
  Receive Date: 20241116
  Receipt Date: 20241116
  Transmission Date: 20250114
  Serious: No
  Sender: SANOFI AVENTIS
  Company Number: US-SA-2024SA330324

PATIENT
  Age: 28 Year
  Sex: Male

DRUGS (1)
  1. DUPILUMAB [Suspect]
     Active Substance: DUPILUMAB
     Dosage: 600 MG, QOW
     Route: 058

REACTIONS (4)
  - Condition aggravated [Unknown]
  - Dry skin [Unknown]
  - Pruritus [Unknown]
  - Incorrect dose administered [Unknown]
